FAERS Safety Report 17018073 (Version 3)
Quarter: 2020Q2

REPORT INFORMATION
  Report Type: Spontaneous
  Country: AU (occurrence: AU)
  Receive Date: 20191111
  Receipt Date: 20200626
  Transmission Date: 20200713
  Serious: Yes (Hospitalization, Other)
  Sender: FDA-Public Use
  Company Number: AU-COLLEGIUM PHARMACEUTICAL, INC.-AU-2019COL001361

PATIENT
  Age: 43 Year
  Sex: Male
  Weight: 80 kg

DRUGS (7)
  1. TAPENTADOL EXTENDED RELEASE [Suspect]
     Active Substance: TAPENTADOL
     Indication: PRODUCT USED FOR UNKNOWN INDICATION
     Dosage: 50 MG, UNK
     Route: 065
     Dates: start: 20190910, end: 20190915
  2. TAPENTADOL EXTENDED RELEASE [Suspect]
     Active Substance: TAPENTADOL
     Dosage: 100 MG, UNK
     Route: 065
     Dates: start: 20190916
  3. EPILIM [Concomitant]
     Active Substance: VALPROATE SODIUM
     Indication: POST-TRAUMATIC STRESS DISORDER
     Dosage: UNK
     Dates: start: 2018
  4. ENDEP [Suspect]
     Active Substance: AMITRIPTYLINE HYDROCHLORIDE
     Indication: POST-TRAUMATIC STRESS DISORDER
     Dosage: 50 MG, QD
     Route: 048
     Dates: start: 2018
  5. PRISTIQ EXTENDED-RELEASE [Suspect]
     Active Substance: DESVENLAFAXINE SUCCINATE
     Indication: POST-TRAUMATIC STRESS DISORDER
     Dosage: 300 MG, QD
     Route: 048
     Dates: start: 2018
  6. FENTANYL. [Concomitant]
     Active Substance: FENTANYL
     Indication: POST-TRAUMATIC STRESS DISORDER
     Dosage: 12 ?G, UNK
     Dates: end: 20190910
  7. MARIJUANA [Suspect]
     Active Substance: CANNABIS SATIVA SUBSP. INDICA TOP
     Indication: PRODUCT USED FOR UNKNOWN INDICATION
     Dosage: UNK
     Route: 055

REACTIONS (7)
  - Condition aggravated [Recovering/Resolving]
  - Dysarthria [Unknown]
  - Tremor [Recovered/Resolved]
  - Balance disorder [Unknown]
  - Hypertension [Recovered/Resolved]
  - Tachycardia [Recovered/Resolved]
  - Serotonin syndrome [Recovering/Resolving]

NARRATIVE: CASE EVENT DATE: 20190925
